FAERS Safety Report 17959729 (Version 7)
Quarter: 2020Q4

REPORT INFORMATION
  Report Type: Report from Study
  Country: JP (occurrence: JP)
  Receive Date: 20200629
  Receipt Date: 20201123
  Transmission Date: 20210113
  Serious: Yes (Hospitalization)
  Sender: FDA-Public Use
  Company Number: JP-JNJFOC-20200627051

PATIENT
  Age: 59 Year
  Sex: Female
  Weight: 46.3 kg

DRUGS (34)
  1. USTEKINUMAB [Suspect]
     Active Substance: USTEKINUMAB
     Dosage: STUDY DRUG ADMINISTRATION FOR USTEKINUMAB OR PLACEBO SUBCUTANEOUS
     Route: 058
     Dates: start: 20190603, end: 20200302
  2. PREDONINE [Concomitant]
     Active Substance: PREDNISOLONE
     Dosage: 22/JUN/2020
     Route: 048
     Dates: start: 20200622
  3. AMLODIPINE [Concomitant]
     Active Substance: AMLODIPINE BESYLATE
     Indication: HYPERTENSION
     Route: 048
     Dates: start: 20120528
  4. VOGLIBOSE [Concomitant]
     Active Substance: VOGLIBOSE
     Indication: DIABETES MELLITUS
     Route: 048
     Dates: start: 20140913
  5. CALCIUM LACTATE [Concomitant]
     Active Substance: CALCIUM LACTATE
     Indication: OSTEOPOROSIS PROPHYLAXIS
     Route: 048
     Dates: start: 20160510
  6. KETOPROFEN. [Concomitant]
     Active Substance: KETOPROFEN
     Indication: SPONDYLOLISTHESIS
     Route: 048
     Dates: start: 20180507
  7. CALFINA [Concomitant]
     Indication: OSTEOPOROSIS PROPHYLAXIS
     Route: 048
     Dates: start: 20120502
  8. PROPETO [Concomitant]
     Active Substance: PETROLATUM
     Route: 061
     Dates: start: 20200730
  9. USTEKINUMAB [Suspect]
     Active Substance: USTEKINUMAB
     Indication: SYSTEMIC LUPUS ERYTHEMATOSUS
     Route: 042
     Dates: start: 20190408, end: 20190408
  10. PREDONINE [Concomitant]
     Active Substance: PREDNISOLONE
     Indication: SYSTEMIC LUPUS ERYTHEMATOSUS
     Route: 048
     Dates: start: 20181204, end: 20191021
  11. PREDONINE [Concomitant]
     Active Substance: PREDNISOLONE
     Route: 048
     Dates: start: 20200718
  12. VILDAGLIPTIN [Concomitant]
     Active Substance: VILDAGLIPTIN
     Indication: DIABETES MELLITUS
     Route: 048
     Dates: start: 20110802
  13. INFLUENZA HA VACCINE [Concomitant]
     Active Substance: INFLUENZA VIRUS VACCINE
     Indication: ANTIVIRAL PROPHYLAXIS
     Route: 058
     Dates: start: 20191021, end: 20191021
  14. PL [Concomitant]
     Active Substance: ACETAMINOPHEN\CAFFEINE\PROMETHAZINE\SALICYLAMIDE
     Indication: NASOPHARYNGITIS
     Route: 048
     Dates: start: 20200117, end: 20200119
  15. TIZANIDINE. [Concomitant]
     Active Substance: TIZANIDINE
     Indication: NECK PAIN
     Route: 048
     Dates: start: 20200406, end: 20200507
  16. LIXIANA [Concomitant]
     Active Substance: EDOXABAN TOSYLATE
     Indication: VENOUS THROMBOSIS
     Route: 048
     Dates: start: 20190415
  17. PREDONINE [Concomitant]
     Active Substance: PREDNISOLONE
     Route: 048
     Dates: start: 20200602, end: 20200621
  18. TAKECAB [Concomitant]
     Active Substance: VONOPRAZAN FUMARATE
     Indication: GASTRODUODENAL ULCER
     Route: 048
     Dates: start: 20161101
  19. EQUA [Concomitant]
     Active Substance: VILDAGLIPTIN
     Indication: DIABETES MELLITUS
     Route: 048
     Dates: start: 20110802
  20. FLORID [Concomitant]
     Active Substance: MICONAZOLE
     Indication: INFECTION PROPHYLAXIS
     Route: 061
     Dates: start: 20200717, end: 20200719
  21. USTEKINUMAB [Suspect]
     Active Substance: USTEKINUMAB
     Dosage: STUDY DRUG ADMINISTRATION FOR USTEKINUMAB SUBCUTANEOUS
     Route: 058
     Dates: start: 20200508
  22. PREDONINE [Concomitant]
     Active Substance: PREDNISOLONE
     Route: 048
     Dates: start: 20191022, end: 20191216
  23. SPIRONOLACTONE. [Concomitant]
     Active Substance: SPIRONOLACTONE
     Indication: HYPERTENSION
     Route: 048
     Dates: start: 20140107
  24. LYRICA [Concomitant]
     Active Substance: PREGABALIN
     Indication: NECK PAIN
  25. RISEDRONATE SODIUM. [Concomitant]
     Active Substance: RISEDRONATE SODIUM
     Indication: OSTEOPOROSIS PROPHYLAXIS
     Route: 048
     Dates: start: 20140208
  26. PL [Concomitant]
     Active Substance: ACETAMINOPHEN\CAFFEINE\PROMETHAZINE\SALICYLAMIDE
     Route: 048
     Dates: start: 20191128, end: 20191129
  27. PYLON [Concomitant]
     Indication: SYSTEMIC LUPUS ERYTHEMATOSUS
     Dosage: AS NECESSARY
     Route: 048
     Dates: start: 20200512, end: 20200601
  28. PREDONINE [Concomitant]
     Active Substance: PREDNISOLONE
     Route: 048
     Dates: start: 20200622
  29. ATORVASTATIN [Concomitant]
     Active Substance: ATORVASTATIN
     Indication: HYPERLIPIDAEMIA
     Route: 048
     Dates: start: 20131210
  30. URSODEOXYCHOLIC ACID [Concomitant]
     Active Substance: URSODIOL
     Indication: CHOLELITHIASIS
     Route: 048
     Dates: start: 20190827
  31. PREDONINE [Concomitant]
     Active Substance: PREDNISOLONE
     Route: 048
     Dates: start: 20191217
  32. SUCRALFATE. [Concomitant]
     Active Substance: SUCRALFATE
     Indication: GASTRODUODENAL ULCER
     Route: 048
     Dates: start: 20140913
  33. LYRICA [Concomitant]
     Active Substance: PREGABALIN
     Indication: SPONDYLOLISTHESIS
     Route: 048
     Dates: start: 20160905
  34. BACTRAMIN [Concomitant]
     Active Substance: SULFAMETHOXAZOLE\TRIMETHOPRIM
     Indication: INFECTION PROPHYLAXIS
     Route: 048
     Dates: start: 20200714

REACTIONS (1)
  - Systemic lupus erythematosus [Recovered/Resolved]

NARRATIVE: CASE EVENT DATE: 20200601
